FAERS Safety Report 9511189 (Version 1)
Quarter: 2013Q3

REPORT INFORMATION
  Report Type: Spontaneous
  Country: US (occurrence: None)
  Receive Date: 20130906
  Receipt Date: 20130906
  Transmission Date: 20140515
  Serious: Yes (Other)
  Sender: FDA-Public Use
  Company Number: US-ZYDUS-002136

PATIENT
  Age: 56 Year
  Sex: Female

DRUGS (2)
  1. WARFARIN [Suspect]
     Indication: ANTIPHOSPHOLIPID SYNDROME
  2. PREDNISON [Suspect]
     Indication: SYSTEMIC LUPUS ERYTHEMATOSUS
     Dosage: 20.00-MG-1.0 DAYS

REACTIONS (1)
  - Nocardiosis [None]
